FAERS Safety Report 18947352 (Version 1)
Quarter: 2021Q1

REPORT INFORMATION
  Report Type: Spontaneous
  Country: CN (occurrence: CN)
  Receive Date: 20210226
  Receipt Date: 20210226
  Transmission Date: 20210420
  Serious: Yes (Other)
  Sender: FDA-Public Use
  Company Number: CN-PFIZER INC-2021154269

PATIENT
  Age: 65 Year
  Sex: Male

DRUGS (6)
  1. SOLU?MEDROL [Suspect]
     Active Substance: METHYLPREDNISOLONE SODIUM SUCCINATE
     Indication: MYOSITIS
     Dosage: 40.000 MG, 1X/DAY
     Route: 041
     Dates: start: 20210113, end: 20210115
  2. SOLU?MEDROL [Suspect]
     Active Substance: METHYLPREDNISOLONE SODIUM SUCCINATE
     Dosage: 40.000 MG, 2X/DAY
     Route: 041
     Dates: start: 20210115, end: 20210115
  3. SOLU?MEDROL [Suspect]
     Active Substance: METHYLPREDNISOLONE SODIUM SUCCINATE
     Dosage: 80.000 MG, 1X/DAY
     Route: 041
     Dates: start: 20210115, end: 20210118
  4. SOLU?MEDROL [Suspect]
     Active Substance: METHYLPREDNISOLONE SODIUM SUCCINATE
     Dosage: 40.000 MG, 1X/DAY
     Route: 041
     Dates: start: 20210115, end: 20210118
  5. SODIUM CHLORIDE. [Concomitant]
     Active Substance: SODIUM CHLORIDE
     Indication: VEHICLE SOLUTION USE
     Dosage: 100 ML
  6. SOLU?MEDROL [Suspect]
     Active Substance: METHYLPREDNISOLONE SODIUM SUCCINATE
     Dosage: 500.000 MG, 1X/DAY
     Route: 041
     Dates: start: 20210118, end: 20210120

REACTIONS (1)
  - Blood glucose increased [Recovering/Resolving]

NARRATIVE: CASE EVENT DATE: 20210118
